FAERS Safety Report 11378561 (Version 1)
Quarter: 2015Q3

REPORT INFORMATION
  Report Type: Spontaneous
  Country: US (occurrence: US)
  Receive Date: 20150811
  Receipt Date: 20150811
  Transmission Date: 20151125
  Serious: No
  Sender: FDA-Public Use
  Company Number: US-ELI_LILLY_AND_COMPANY-US200811001809

PATIENT
  Age: 51 Year
  Sex: Female

DRUGS (1)
  1. HUMULIN N [Suspect]
     Active Substance: INSULIN HUMAN
     Indication: TYPE 2 DIABETES MELLITUS
     Dates: start: 200611

REACTIONS (8)
  - Fear [Unknown]
  - Tremor [Unknown]
  - Headache [Unknown]
  - Decreased appetite [Unknown]
  - Malaise [Unknown]
  - Nausea [Unknown]
  - Crying [Unknown]
  - Diarrhoea [Unknown]

NARRATIVE: CASE EVENT DATE: 200810
